FAERS Safety Report 6160920-7 (Version None)
Quarter: 2009Q2

REPORT INFORMATION
  Report Type: 
  Country: None (occurrence: None)
  Receive Date: 20090420
  Receipt Date: 20090415
  Transmission Date: 20091009
  Serious: Yes (Life-Threatening)
  Sender: FDA-Public Use
  Company Number: PHHY2009DE13383

PATIENT
  Sex: Female

DRUGS (1)
  1. SEQUIDOT [Suspect]
     Indication: MENOPAUSAL SYMPTOMS
     Dosage: UNK
     Route: 062
     Dates: end: 20090401

REACTIONS (3)
  - DRUG ADMINISTRATION ERROR [None]
  - FALL [None]
  - LOSS OF CONSCIOUSNESS [None]
